FAERS Safety Report 5348434-5 (Version None)
Quarter: 2007Q2

REPORT INFORMATION
  Report Type: 
  Country: None (occurrence: None)
  Receive Date: 20070606
  Receipt Date: 20070528
  Transmission Date: 20071010
  Serious: Yes (Death)
  Sender: FDA-Public Use
  Company Number: FR-PFIZER INC-2007042276

PATIENT
  Age: 71 Year
  Sex: Male

DRUGS (11)
  1. ALDACTONE [Suspect]
     Indication: OEDEMA PERIPHERAL
     Dosage: TEXT:1 DF  EVERY DAY
     Route: 048
     Dates: start: 20070127, end: 20070211
  2. LASIX [Suspect]
     Indication: OEDEMA PERIPHERAL
     Dosage: TEXT:1 DF  EVERY DAY
     Route: 048
     Dates: start: 20070127, end: 20070211
  3. ACETAMINOPHEN [Concomitant]
     Route: 048
     Dates: start: 20070202, end: 20070206
  4. CLAFORAN [Concomitant]
     Route: 042
     Dates: start: 20070205, end: 20070209
  5. CIFLOX [Concomitant]
     Route: 048
     Dates: start: 20070209, end: 20070210
  6. INIPOMP [Concomitant]
     Route: 048
     Dates: start: 20070206, end: 20070211
  7. AVLOCARDYL [Concomitant]
  8. SOLUPRED [Concomitant]
  9. DESLORATADINE [Concomitant]
  10. ATARAX [Concomitant]
  11. EFFERALGAN CODEINE [Concomitant]
     Route: 048
     Dates: start: 20070206, end: 20070209

REACTIONS (1)
  - TOXIC EPIDERMAL NECROLYSIS [None]
